FAERS Safety Report 14851528 (Version 1)
Quarter: 2018Q2

REPORT INFORMATION
  Report Type: Spontaneous
  Country: US (occurrence: US)
  Receive Date: 20180507
  Receipt Date: 20180507
  Transmission Date: 20180711
  Serious: No
  Sender: FDA-Public Use
  Company Number: US-009507513-1804USA007159

PATIENT
  Age: 27 Year
  Sex: Female
  Weight: 72.56 kg

DRUGS (2)
  1. NUVARING [Suspect]
     Active Substance: ETHINYL ESTRADIOL\ETONOGESTREL
     Dosage: RING
     Route: 067
     Dates: start: 20180412, end: 20180415
  2. NUVARING [Suspect]
     Active Substance: ETHINYL ESTRADIOL\ETONOGESTREL
     Indication: CONTRACEPTION
     Dosage: RING
     Route: 067
     Dates: end: 20180412

REACTIONS (5)
  - Device expulsion [Unknown]
  - No adverse event [Unknown]
  - Product quality issue [Unknown]
  - Incorrect drug administration duration [Unknown]
  - Product use in unapproved indication [Unknown]

NARRATIVE: CASE EVENT DATE: 20180410
